FAERS Safety Report 21748435 (Version 3)
Quarter: 2024Q4

REPORT INFORMATION
  Report Type: Spontaneous
  Country: US (occurrence: US)
  Receive Date: 20221219
  Receipt Date: 20241011
  Transmission Date: 20250115
  Serious: Yes (Hospitalization, Other)
  Sender: NOVARTIS
  Company Number: US-002147023-NVSC2022US293008

PATIENT
  Sex: Male
  Weight: 83 kg

DRUGS (1)
  1. PLUVICTO [Suspect]
     Active Substance: LUTETIUM LU-177 VIPIVOTIDE TETRAXETAN
     Indication: Prostate cancer metastatic
     Dosage: 200 MCI, Q4W (RECEIVED 01 DOSE)
     Route: 042
     Dates: start: 20221107, end: 20230208

REACTIONS (4)
  - Ill-defined disorder [Unknown]
  - Hydronephrosis [Unknown]
  - Urosepsis [Unknown]
  - Expired product administered [Unknown]
